FAERS Safety Report 7219424-2 (Version None)
Quarter: 2011Q1

REPORT INFORMATION
  Report Type: 
  Country: None (occurrence: None)
  Receive Date: 20110103
  Receipt Date: 20101217
  Transmission Date: 20110831
  Serious: Yes (Hospitalization)
  Sender: FDA-Public Use
  Company Number: 1000017823

PATIENT
  Age: 85 Year
  Sex: Male

DRUGS (8)
  1. FENTANYL [Suspect]
     Indication: MUSCULOSKELETAL CHEST PAIN
     Dosage: 1800 MICROGRAM (75 MCG, 1 IN 1 HR),INTRAVENOUS DRIP 600 MICROGRAM (25 MCG, 1 IN 1 HR),INTRAVENOUS DR
     Route: 041
  2. FLOMAX (TAMSULOSIN) ( TAMSULOSIN) [Concomitant]
  3. OXYCODONE HCL [Concomitant]
  4. SENNA (SENNA) ( SENNA) [Concomitant]
  5. PREVACID (LANSOPRAZOLE)(LANSOPRAZOLE) [Concomitant]
  6. COLACE (DOCUSATE SODIUM) ( DOCUSATE SODIUM) [Concomitant]
  7. DILTIAZEM HCL [Suspect]
     Indication: SUPRAVENTRICULAR TACHYCARDIA
  8. RANITIDINE (RANITIDINE) (RANITIDINE) [Concomitant]

REACTIONS (15)
  - DECREASED ACTIVITY [None]
  - DRUG INTERACTION [None]
  - SOMNOLENCE [None]
  - BLOOD CREATININE INCREASED [None]
  - BLOOD UREA DECREASED [None]
  - WHITE BLOOD CELL COUNT INCREASED [None]
  - DELIRIUM [None]
  - URINARY TRACT INFECTION [None]
  - PNEUMONIA [None]
  - DEHYDRATION [None]
  - BEDRIDDEN [None]
  - HAEMOGLOBIN DECREASED [None]
  - ELECTROCARDIOGRAM QT PROLONGED [None]
  - CLOSTRIDIUM DIFFICILE COLITIS [None]
  - MIOSIS [None]
